FAERS Safety Report 9438880 (Version 10)
Quarter: 2014Q4

REPORT INFORMATION
  Report Type: Report from Study
  Country: CN (occurrence: CN)
  Receive Date: 20130802
  Receipt Date: 20141013
  Transmission Date: 20150529
  Serious: Yes (Other)
  Sender: FDA-Public Use
  Company Number: CN-UCBSA-092808

PATIENT
  Age: 29 Year
  Sex: Male
  Weight: 47.5 kg

DRUGS (16)
  1. BELLADONNA/SULFAMETHOXAZOLE AND TRIMETHOPRIM [Concomitant]
     Indication: DIARRHOEA
     Dosage: .96 G, 2X/DAY (BID)
     Route: 048
     Dates: start: 20130621, end: 20130621
  2. DEXAMETHASONE. [Concomitant]
     Active Substance: DEXAMETHASONE
     Indication: PYREXIA
     Dosage: 10 MG, ONCE DAILY (QD)
     Route: 042
     Dates: start: 20130714, end: 20130714
  3. MOTILIUM [Concomitant]
     Active Substance: DOMPERIDONE
     Indication: ABDOMINAL PAIN UPPER
     Dosage: 1 TAB
     Route: 048
     Dates: start: 20130827, end: 20130827
  4. LACOSAMIDE EP [Suspect]
     Active Substance: LACOSAMIDE
     Dosage: UNK UNK, 2X/DAY (BID)
     Dates: start: 20130730, end: 20130829
  5. VITAMIN C [Concomitant]
     Active Substance: ASCORBIC ACID
     Indication: PYREXIA
     Dosage: 1 G, ONCE DAILY (QD)
     Dates: start: 20130715, end: 20130715
  6. BELLADONNA/SULFAMETHOXAZOLE AND TRIMETHOPRIM [Concomitant]
     Indication: DIARRHOEA
     Dosage: .96 G, 2X/DAY (BID)
     Route: 048
     Dates: start: 20130621, end: 20130621
  7. LEVOFLOXACIN. [Concomitant]
     Active Substance: LEVOFLOXACIN
     Indication: PYREXIA
     Dosage: 200 MG, ONCE DAILY (QD)
     Dates: start: 20130714, end: 20130714
  8. VITAMIN B6 [Concomitant]
     Active Substance: PYRIDOXINE HYDROCHLORIDE
     Indication: PYREXIA
     Dosage: .1 G, ONCE DAILY (QD)
     Dates: start: 20130715, end: 20130715
  9. LACOSAMIDE EP [Suspect]
     Active Substance: LACOSAMIDE
     Indication: PARTIAL SEIZURES
     Dosage: 200 MG, 2X/DAY (BID)
     Route: 048
     Dates: start: 20130607, end: 20130718
  10. CITICOLINE [Concomitant]
     Active Substance: CITICOLINE
     Indication: PYREXIA
     Dosage: .75 G, ONCE DAILY (QD)
     Dates: start: 20130715, end: 20130715
  11. IBUPROFEN. [Concomitant]
     Active Substance: IBUPROFEN
     Indication: PYREXIA
     Dosage: 15 ML, 2X/DAY (BID)
     Route: 048
     Dates: start: 20130715, end: 20130719
  12. PHENOBARBITAL. [Concomitant]
     Active Substance: PHENOBARBITAL
     Indication: EPILEPSY
     Dosage: 30 MG, 2X/DAY (BID)
     Route: 048
     Dates: start: 201301
  13. FOSFOMYCIN [Concomitant]
     Active Substance: FOSFOMYCIN
     Indication: PYREXIA
     Dosage: 4 G, ONCE DAILY (QD)
     Dates: start: 20130714, end: 20130715
  14. CARBAMAZEPINE. [Concomitant]
     Active Substance: CARBAMAZEPINE
     Indication: EPILEPSY
     Dosage: .2 G, 3X/DAY (TID)
     Route: 048
     Dates: start: 199812
  15. CYTOSINE ARABINOSIDE [Concomitant]
     Active Substance: CYTARABINE
     Indication: PYREXIA
     Dosage: 20 MG, ONCE DAILY (QD)
     Dates: start: 20130714, end: 20130715
  16. MANNITOL. [Concomitant]
     Active Substance: MANNITOL
     Indication: PYREXIA
     Dosage: 250 ML, ONCE DAILY (QD)
     Dates: start: 20130715, end: 20130715

REACTIONS (1)
  - Liver disorder [Recovered/Resolved]

NARRATIVE: CASE EVENT DATE: 20130828
